FAERS Safety Report 11659040 (Version 1)
Quarter: 2015Q4

REPORT INFORMATION
  Report Type: Spontaneous
  Country: US (occurrence: None)
  Receive Date: 20151023
  Receipt Date: 20151023
  Transmission Date: 20160304
  Serious: Yes (Disabling)
  Sender: FDA-Public Use
  Company Number: None

PATIENT
  Age: 8 Year
  Sex: Male
  Weight: 27.67 kg

DRUGS (1)
  1. ONFI [Suspect]
     Active Substance: CLOBAZAM
     Indication: SEIZURE
     Dosage: 5 MG IN AM AND 10 MG IN PM TWICE DAILY TAKEN BY MOUTH
     Route: 048
     Dates: start: 20150826, end: 20151022

REACTIONS (1)
  - Urinary retention [None]

NARRATIVE: CASE EVENT DATE: 20151012
